FAERS Safety Report 10622169 (Version 5)
Quarter: 2016Q1

REPORT INFORMATION
  Report Type: Report from Study
  Country: GB (occurrence: GB)
  Receive Date: 20141203
  Receipt Date: 20160211
  Transmission Date: 20160525
  Serious: Yes (Other)
  Sender: FDA-Public Use
  Company Number: PHFR2014GB005580

PATIENT
  Age: 49 Year
  Sex: Female

DRUGS (3)
  1. GILENYA [Suspect]
     Active Substance: FINGOLIMOD HYDROCHLORIDE
     Indication: MULTIPLE SCLEROSIS
     Dosage: 0.5 MG, QD
     Route: 048
     Dates: start: 20140722, end: 20140731
  2. GILENYA [Suspect]
     Active Substance: FINGOLIMOD HYDROCHLORIDE
     Dosage: UNK, QD
     Route: 048
  3. COPAXONE [Suspect]
     Active Substance: GLATIRAMER ACETATE
     Indication: PRODUCT USED FOR UNKNOWN INDICATION
     Route: 065

REACTIONS (13)
  - Malaise [Recovered/Resolved]
  - Suicidal ideation [Recovered/Resolved]
  - Pain [Recovering/Resolving]
  - Depressed mood [Recovered/Resolved]
  - Multiple sclerosis relapse [Recovering/Resolving]
  - Mobility decreased [Recovering/Resolving]
  - Vision blurred [Unknown]
  - Skin reaction [Unknown]
  - Coordination abnormal [Unknown]
  - Paresis [Unknown]
  - Facial paralysis [Recovering/Resolving]
  - Nausea [Recovered/Resolved]
  - Paralysis [Recovering/Resolving]

NARRATIVE: CASE EVENT DATE: 20140726
